FAERS Safety Report 7622696-3 (Version None)
Quarter: 2011Q3

REPORT INFORMATION
  Report Type: 
  Country: None (occurrence: None)
  Receive Date: 20110712
  Receipt Date: 20110701
  Transmission Date: 20111222
  Serious: Yes (Other)
  Sender: FDA-Public Use
  Company Number: JP-2011-10742

PATIENT
  Age: 73 Year
  Sex: Female
  Weight: 52.4 kg

DRUGS (20)
  1. HACHIMIJIO-GAN (HERBAL EXTRACT NOS) [Concomitant]
  2. SAMSCA [Suspect]
     Indication: CARDIAC FAILURE CHRONIC
     Dosage: 15; 7.5 MG MILLIGRAM,S, QD, ORAL
     Route: 048
     Dates: start: 20110428, end: 20110428
  3. SAMSCA [Suspect]
     Indication: CARDIAC FAILURE CHRONIC
     Dosage: 15; 7.5 MG MILLIGRAM,S, QD, ORAL
     Route: 048
     Dates: start: 20110429, end: 20110430
  4. ALFAROL (ALFACALCIDOL) [Concomitant]
  5. LANIRAPID (METILDIGOXIN) [Concomitant]
  6. REVATIO [Concomitant]
  7. ALDACTONE [Concomitant]
  8. LASIX [Concomitant]
  9. ALLOPURINOL [Concomitant]
  10. DIART (AZOZEMIDE) [Concomitant]
  11. WARFARIN SODIUM [Concomitant]
  12. FOSAMAX [Concomitant]
  13. MEXITIL [Concomitant]
  14. CETAPRIL (ALACEPRIL) [Concomitant]
  15. ACARDI (PIMOBENDAN) [Concomitant]
  16. PREDNISOLONE (PREDNISOLONE SODIUM PHOSPHATE) [Concomitant]
  17. ZANTAC [Concomitant]
  18. FERO-GRADUMET (FERROUS SULFATE) [Concomitant]
  19. AMARYL [Concomitant]
  20. KALGUT (DENOPAMINE) [Concomitant]

REACTIONS (5)
  - ALANINE AMINOTRANSFERASE INCREASED [None]
  - HEPATIC FUNCTION ABNORMAL [None]
  - ASPARTATE AMINOTRANSFERASE INCREASED [None]
  - BLOOD SODIUM INCREASED [None]
  - BLOOD BILIRUBIN INCREASED [None]
